FAERS Safety Report 18067815 (Version 3)
Quarter: 2020Q4

REPORT INFORMATION
  Report Type: Report from Study
  Country: None (occurrence: US)
  Receive Date: 20200724
  Receipt Date: 20201128
  Transmission Date: 20210113
  Serious: Yes (Other)
  Sender: FDA-Public Use
  Company Number: US-ABBVIE-20K-163-3397004-00

PATIENT
  Age: 56 Year
  Sex: Female

DRUGS (4)
  1. HUMIRA [Suspect]
     Active Substance: ADALIMUMAB
     Indication: RHEUMATOID ARTHRITIS
     Route: 058
     Dates: start: 20200502, end: 2020
  2. CIPRO [Suspect]
     Active Substance: CIPROFLOXACIN HYDROCHLORIDE
     Indication: PRODUCT USED FOR UNKNOWN INDICATION
     Route: 065
  3. HUMIRA [Suspect]
     Active Substance: ADALIMUMAB
     Route: 058
     Dates: start: 2020
  4. DIFLUCAN [Suspect]
     Active Substance: FLUCONAZOLE
     Indication: PRODUCT USED FOR UNKNOWN INDICATION
     Route: 065

REACTIONS (27)
  - Musculoskeletal stiffness [Not Recovered/Not Resolved]
  - Peripheral swelling [Not Recovered/Not Resolved]
  - Asthenia [Recovering/Resolving]
  - Loss of personal independence in daily activities [Not Recovered/Not Resolved]
  - Nerve compression [Not Recovered/Not Resolved]
  - Pain in extremity [Not Recovered/Not Resolved]
  - Device issue [Unknown]
  - Eczema [Not Recovered/Not Resolved]
  - Systemic lupus erythematosus [Unknown]
  - Joint range of motion decreased [Recovering/Resolving]
  - Cough [Unknown]
  - Fatigue [Recovering/Resolving]
  - Family stress [Unknown]
  - Injection site discolouration [Unknown]
  - Diabetic neuropathy [Unknown]
  - Nausea [Unknown]
  - Diarrhoea [Unknown]
  - SARS-CoV-2 test positive [Unknown]
  - Gait disturbance [Not Recovered/Not Resolved]
  - Joint stiffness [Not Recovered/Not Resolved]
  - Arthralgia [Not Recovered/Not Resolved]
  - Incorrect dose administered [Unknown]
  - Arthritis [Not Recovered/Not Resolved]
  - Pain [Not Recovered/Not Resolved]
  - Spinal operation [Unknown]
  - Asthenia [Unknown]
  - Fungal skin infection [Recovered/Resolved]

NARRATIVE: CASE EVENT DATE: 2020
